FAERS Safety Report 7539159-6 (Version None)
Quarter: 2011Q2

REPORT INFORMATION
  Report Type: 
  Country: None (occurrence: None)
  Receive Date: 20110610
  Receipt Date: 20050228
  Transmission Date: 20111010
  Serious: Yes (Death, Other)
  Sender: FDA-Public Use
  Company Number: PHBS2002CA13782

PATIENT
  Sex: Female

DRUGS (11)
  1. ALTACE [Concomitant]
     Route: 065
  2. UNIPHYL [Concomitant]
     Route: 065
  3. GLUCOPHAGE [Concomitant]
     Route: 065
  4. SYNTHROID [Concomitant]
     Route: 065
  5. DOMPERIDONE [Concomitant]
     Route: 065
  6. VALPROATE SODIUM [Concomitant]
     Route: 065
  7. NOVOSEMIDE [Concomitant]
     Route: 065
  8. CLOZAPINE [Suspect]
     Indication: SCHIZOPHRENIA
     Dosage: 200 MG/D
     Route: 048
     Dates: start: 20021012
  9. DIGOXIN [Concomitant]
     Route: 065
  10. DIAMICRON [Concomitant]
     Route: 065
  11. HUMULIN R [Concomitant]
     Route: 065

REACTIONS (5)
  - DEATH [None]
  - PARKINSONISM [None]
  - GAIT DISTURBANCE [None]
  - TREMOR [None]
  - COGWHEEL RIGIDITY [None]
